FAERS Safety Report 9566787 (Version 1)
Quarter: 2013Q3

REPORT INFORMATION
  Report Type: Spontaneous
  Country: US (occurrence: US)
  Receive Date: 20130930
  Receipt Date: 20130930
  Transmission Date: 20140515
  Serious: No
  Sender: FDA-Public Use
  Company Number: US-AMGEN-USASP2012079374

PATIENT
  Sex: Female
  Weight: 99.77 kg

DRUGS (5)
  1. ENBREL [Suspect]
     Indication: RHEUMATOID ARTHRITIS
     Dosage: 50 MG, QWK
     Route: 058
  2. ZOLOFT [Concomitant]
     Dosage: 25 MG, UNK
  3. ZYRTEC [Concomitant]
     Dosage: 10 MG, UNK
  4. MOTRIN IB [Concomitant]
     Dosage: 200 MG, UNK
  5. IMITREX                            /01044801/ [Concomitant]
     Dosage: 25 MG, UNK

REACTIONS (1)
  - Malaise [Recovered/Resolved]
